FAERS Safety Report 7690991-8 (Version None)
Quarter: 2011Q3

REPORT INFORMATION
  Report Type: 
  Country: None (occurrence: None)
  Receive Date: 20110812
  Receipt Date: 20110805
  Transmission Date: 20111222
  Serious: Yes (Hospitalization)
  Sender: FDA-Public Use
  Company Number: 1004299

PATIENT
  Age: 50 Year
  Sex: Female

DRUGS (2)
  1. NAVELBINE [Suspect]
     Indication: LUNG SQUAMOUS CELL CARCINOMA STAGE UNSPECIFIED
     Dosage: ORAL
     Route: 048
  2. PAMIDRONATE DISODIUM [Suspect]
     Indication: METASTASES TO BONE

REACTIONS (4)
  - ANAEMIA [None]
  - MUCOSAL INFLAMMATION [None]
  - OESOPHAGITIS [None]
  - THROMBOCYTOPENIA [None]
